FAERS Safety Report 4758802-8 (Version None)
Quarter: 2005Q3

REPORT INFORMATION
  Report Type: 
  Country: None (occurrence: None)
  Receive Date: 20050901
  Receipt Date: 20050823
  Transmission Date: 20060218
  Serious: Yes (Other)
  Sender: FDA-Public Use
  Company Number: US-MERCK-0508USA03840

PATIENT
  Age: 67 Year
  Sex: Male

DRUGS (11)
  1. FUROSEMIDE [Concomitant]
     Route: 065
  2. ISOSORBIDE [Concomitant]
     Route: 065
  3. RANITIDINE [Concomitant]
     Route: 065
  4. METFORMIN [Concomitant]
     Route: 065
  5. DILANTIN [Concomitant]
     Route: 065
  6. LIPITOR [Concomitant]
     Route: 065
  7. METOPROLOL [Concomitant]
     Route: 065
  8. PRINIVIL [Suspect]
     Indication: BLOOD PRESSURE
     Route: 048
     Dates: start: 19920101, end: 20050801
  9. FLOMAX [Concomitant]
     Route: 065
  10. ASPIRIN [Concomitant]
     Route: 065
  11. PLAVIX [Concomitant]
     Route: 065

REACTIONS (6)
  - CARDIAC DISORDER [None]
  - COUGH [None]
  - DIZZINESS [None]
  - HEADACHE [None]
  - PROSTATE CANCER [None]
  - TREMOR [None]
